FAERS Safety Report 8443518-7 (Version None)
Quarter: 2012Q2

REPORT INFORMATION
  Report Type: 
  Country: None (occurrence: None)
  Receive Date: 20120618
  Receipt Date: 20120612
  Transmission Date: 20120825
  Serious: No
  Sender: FDA-Public Use
  Company Number: US-PFIZER INC-2012141779

PATIENT
  Sex: Female
  Weight: 88.435 kg

DRUGS (6)
  1. ELMIRON [Concomitant]
     Dosage: UNK
  2. LYRICA [Suspect]
     Dosage: UNK
     Route: 048
  3. OXYCONTIN [Concomitant]
     Dosage: UNK
  4. CYMBALTA [Concomitant]
     Dosage: UNK
  5. LYRICA [Suspect]
     Indication: FIBROMYALGIA
     Dosage: 150 MG, 2X/DAY
     Route: 048
  6. CYCLOBENZAPRINE [Concomitant]
     Indication: ANXIETY
     Dosage: UNK

REACTIONS (2)
  - RASH [None]
  - SKIN DISORDER [None]
